FAERS Safety Report 8557656-1 (Version None)
Quarter: 2012Q2

REPORT INFORMATION
  Report Type: 
  Country: None (occurrence: None)
  Receive Date: 20120418
  Receipt Date: 20110317
  Transmission Date: 20120825
  Serious: Yes (Other)
  Sender: FDA-Public Use
  Company Number: PHHY2010US90645

PATIENT
  Age: 60 Year
  Sex: Female

DRUGS (2)
  1. LISINOPRIL [Suspect]
  2. DIOVAN HCT [Suspect]

REACTIONS (3)
  - FLUID RETENTION [None]
  - VEIN DISORDER [None]
  - HYPERTENSION [None]
